FAERS Safety Report 7493699-7 (Version None)
Quarter: 2011Q2

REPORT INFORMATION
  Report Type: 
  Country: None (occurrence: None)
  Receive Date: 20110520
  Receipt Date: 20110512
  Transmission Date: 20111010
  Serious: Yes (Other)
  Sender: FDA-Public Use
  Company Number: JP-EISAI INC-E3810-04631-SPO-JP

PATIENT
  Age: 78 Year
  Sex: Male
  Weight: 60 kg

DRUGS (7)
  1. GLYBURIDE [Concomitant]
  2. MIGLITOL [Concomitant]
  3. RABEPRAZOLE SODIUM [Suspect]
     Route: 048
     Dates: start: 20110413, end: 20110416
  4. AMOXICILLIN [Suspect]
     Route: 048
     Dates: start: 20110413, end: 20110416
  5. AMOXICILLIN [Suspect]
     Dosage: UNKNOWN
     Route: 048
     Dates: start: 20110413, end: 20110416
  6. NORVASC [Concomitant]
  7. LOSARTAN POTASSIUM [Concomitant]

REACTIONS (1)
  - TRANSIENT ISCHAEMIC ATTACK [None]
